FAERS Safety Report 10904150 (Version 1)
Quarter: 2015Q1

REPORT INFORMATION
  Report Type: Spontaneous
  Country: US (occurrence: None)
  Receive Date: 20150303
  Receipt Date: 20150303
  Transmission Date: 20150721
  Serious: Yes (Disabling)
  Sender: FDA-Public Use
  Company Number: None

PATIENT
  Age: 59 Year
  Sex: Male
  Weight: 96.16 kg

DRUGS (3)
  1. PRAVASTATIN [Suspect]
     Active Substance: PRAVASTATIN\PRAVASTATIN SODIUM
     Indication: BLOOD CHOLESTEROL INCREASED
     Dosage: 1 PILL
     Route: 048
     Dates: start: 20140517, end: 20140926
  2. SIMVASTATIN. [Suspect]
     Active Substance: SIMVASTATIN
     Indication: BLOOD CHOLESTEROL
     Dosage: 1 PILL
     Route: 048
     Dates: start: 20141013, end: 20141026
  3. METOPROLOL SUCC [Concomitant]
     Active Substance: METOPROLOL SUCCINATE

REACTIONS (3)
  - Musculoskeletal pain [None]
  - Joint lock [None]
  - Urine odour abnormal [None]

NARRATIVE: CASE EVENT DATE: 20150302
